FAERS Safety Report 23081075 (Version 6)
Quarter: 2024Q2

REPORT INFORMATION
  Report Type: Spontaneous
  Country: US (occurrence: US)
  Receive Date: 20231018
  Receipt Date: 20240528
  Transmission Date: 20240716
  Serious: No
  Sender: FDA-Public Use
  Company Number: US-Calliditas-2023CAL01354

PATIENT
  Age: 60 Year
  Sex: Female

DRUGS (8)
  1. TARPEYO [Suspect]
     Active Substance: BUDESONIDE
     Indication: IgA nephropathy
     Dosage: 16 MG (4 MG CAPSULES) ONCE DAILY
     Route: 048
     Dates: start: 20230920
  2. VELTASSA [Concomitant]
     Active Substance: PATIROMER
  3. FILSPARI [Concomitant]
     Active Substance: SPARSENTAN
  4. FARXIGA [Concomitant]
     Active Substance: DAPAGLIFLOZIN PROPANEDIOL
  5. ATORVASTATIN [Concomitant]
     Active Substance: ATORVASTATIN
  6. SODIUM BICARBONATE [Concomitant]
     Active Substance: SODIUM BICARBONATE
  7. OMEGA-3 FATTY ACIDS [Concomitant]
     Active Substance: OMEGA-3 FATTY ACIDS
  8. PROBIOTIC COMPLEX [Concomitant]

REACTIONS (5)
  - Hypertension [Recovered/Resolved]
  - Dyspepsia [Recovered/Resolved]
  - Weight increased [Not Recovered/Not Resolved]
  - Fall [Unknown]
  - Contusion [Unknown]

NARRATIVE: CASE EVENT DATE: 20230901
